FAERS Safety Report 24994726 (Version 1)
Quarter: 2025Q1

REPORT INFORMATION
  Report Type: Spontaneous
  Country: FR (occurrence: FR)
  Receive Date: 20250221
  Receipt Date: 20250221
  Transmission Date: 20250409
  Serious: Yes (Hospitalization)
  Sender: RANBAXY
  Company Number: FR-SUN PHARMACEUTICAL INDUSTRIES LTD-2025RR-496107

PATIENT
  Age: 54 Year
  Sex: Male
  Weight: 51 kg

DRUGS (3)
  1. OXALIPLATIN [Suspect]
     Active Substance: OXALIPLATIN
     Indication: Hodgkin^s disease
     Route: 065
     Dates: start: 20240125
  2. ASPARAGINASE [Suspect]
     Active Substance: ASPARAGINASE
     Indication: Adult T-cell lymphoma/leukaemia
     Route: 065
     Dates: start: 20240125
  3. KEYTRUDA [Suspect]
     Active Substance: PEMBROLIZUMAB
     Indication: Adult T-cell lymphoma/leukaemia
     Route: 065

REACTIONS (2)
  - Venoocclusive liver disease [Recovered/Resolved with Sequelae]
  - Hepatic steatosis [Recovered/Resolved]

NARRATIVE: CASE EVENT DATE: 20240619
